FAERS Safety Report 9258815 (Version 1)
Quarter: 2013Q2

REPORT INFORMATION
  Report Type: Spontaneous
  Country: BR (occurrence: BR)
  Receive Date: 20130426
  Receipt Date: 20130426
  Transmission Date: 20140414
  Serious: Yes (Other)
  Sender: FDA-Public Use
  Company Number: BR-ELI_LILLY_AND_COMPANY-BR201304004768

PATIENT
  Age: 46 Year
  Sex: Female
  Weight: 90 kg

DRUGS (10)
  1. HUMALOG 25% LISPRO, 75% NPL [Suspect]
     Indication: DIABETES MELLITUS
     Dosage: 32 IU, EACH MORNING
     Route: 065
     Dates: start: 20130412
  2. HUMALOG 25% LISPRO, 75% NPL [Suspect]
     Dosage: 10 IU, EACH EVENING
     Route: 065
     Dates: start: 20130412
  3. HUMALOG 25% LISPRO, 75% NPL [Suspect]
     Dosage: 12 IU, EACH MORNING
     Route: 065
     Dates: start: 20130415
  4. HUMALOG 25% LISPRO, 75% NPL [Suspect]
     Dosage: 4 IU, EACH EVENING
     Route: 065
     Dates: start: 20130415
  5. ONGLYZA [Concomitant]
     Indication: DIABETES MELLITUS
     Dosage: 5 MG, EACH MORNING
     Route: 065
  6. METFORMINA [Concomitant]
     Indication: DIABETES MELLITUS
     Dosage: UNK UNK, TID
     Route: 065
  7. LOSARTAN [Concomitant]
     Indication: HYPERTENSION
     Dosage: UNK UNK,
     Route: 065
  8. ATENOLOL [Concomitant]
     Indication: HYPERTENSION
     Dosage: 25 MG, BID
     Route: 065
  9. THIOCTACID HR [Concomitant]
     Indication: DIABETIC NEUROPATHY
     Dosage: 600 DF, QD
     Route: 065
  10. CLONAZEPAM [Concomitant]
     Dosage: 2 MG, BID
     Route: 065

REACTIONS (8)
  - Hypertension [Not Recovered/Not Resolved]
  - Visual impairment [Not Recovered/Not Resolved]
  - Hyperhidrosis [Not Recovered/Not Resolved]
  - Eye swelling [Not Recovered/Not Resolved]
  - Muscular weakness [Not Recovered/Not Resolved]
  - Headache [Not Recovered/Not Resolved]
  - Tremor [Not Recovered/Not Resolved]
  - Diarrhoea [Not Recovered/Not Resolved]
